FAERS Safety Report 5253607-6 (Version None)
Quarter: 2007Q1

REPORT INFORMATION
  Report Type: 
  Country: None (occurrence: None)
  Receive Date: 20061201
  Receipt Date: 20060726
  Transmission Date: 20070707
  Serious: No
  Sender: FDA-Public Use
  Company Number: 2006PV018378

PATIENT
  Age: 64 Year
  Sex: Female
  Weight: 108.8633 kg

DRUGS (6)
  1. BYETTA [Suspect]
     Indication: DIABETES MELLITUS NON-INSULIN-DEPENDENT
     Dosage: 10 MCG;QD;SC, 5 MCG;QD;SC
     Route: 058
     Dates: start: 20060531, end: 20060601
  2. BYETTA [Suspect]
     Indication: DIABETES MELLITUS NON-INSULIN-DEPENDENT
     Dosage: 10 MCG;QD;SC, 5 MCG;QD;SC
     Route: 058
     Dates: start: 20060601
  3. GLUCOPHAGE [Concomitant]
  4. PROTONIX [Concomitant]
  5. REGLAN [Concomitant]
  6. ZANTAC [Concomitant]

REACTIONS (4)
  - BRONCHITIS [None]
  - NAUSEA [None]
  - SINUSITIS [None]
  - WEIGHT DECREASED [None]
